FAERS Safety Report 8973173 (Version 1)
Quarter: 2012Q4

REPORT INFORMATION
  Report Type: 
  Country: US (occurrence: US)
  Receive Date: 20121218
  Receipt Date: 20121218
  Transmission Date: 20130627
  Serious: Yes (Hospitalization, Other)
  Sender: FDA-Public Use
  Company Number: US-009507513-2010SP007773

PATIENT

DRUGS (1)
  1. NUVARING [Suspect]
     Indication: CONTRACEPTION
     Dates: start: 2003, end: 200407

REACTIONS (11)
  - Pulmonary embolism [Recovered/Resolved]
  - Headache [Unknown]
  - Endometriosis [Unknown]
  - Foot deformity [Unknown]
  - Pelvic pain [Unknown]
  - Menorrhagia [Unknown]
  - Diabetes mellitus [Unknown]
  - Hypertension [Unknown]
  - Hyperlipidaemia [Unknown]
  - Paraesthesia [Unknown]
  - Chest pain [Unknown]
